FAERS Safety Report 7428867-3 (Version None)
Quarter: 2011Q2

REPORT INFORMATION
  Report Type: 
  Country: None (occurrence: None)
  Receive Date: 20110413
  Receipt Date: 20110328
  Transmission Date: 20111010
  Serious: Yes (Hospitalization, Other)
  Sender: FDA-Public Use
  Company Number: 018472

PATIENT
  Sex: Female

DRUGS (18)
  1. CERTOLIZUMAB PEGOL (CERTOLIZUMAB PEGOL) [Suspect]
     Indication: RHEUMATOID ARTHRITIS
     Dosage: SEE IMAGE
     Route: 058
     Dates: start: 20090723, end: 20090101
  2. CERTOLIZUMAB PEGOL (CERTOLIZUMAB PEGOL) [Suspect]
     Indication: RHEUMATOID ARTHRITIS
     Dosage: SEE IMAGE
     Route: 058
     Dates: start: 20100204, end: 20100819
  3. CERTOLIZUMAB PEGOL (CERTOLIZUMAB PEGOL) [Suspect]
     Indication: RHEUMATOID ARTHRITIS
     Dosage: SEE IMAGE
     Route: 058
     Dates: start: 20100101, end: 20100121
  4. REBAMIPIDE [Concomitant]
  5. PREDNISOLONE [Concomitant]
  6. FAMOTIDINE [Concomitant]
  7. DICLOFENAC SODIUM [Concomitant]
  8. ELCATONIN [Concomitant]
  9. FEXOFENADINE HYROCHLORIDE [Concomitant]
  10. AROTINOLOL HYDROCHLORIDE [Concomitant]
  11. SALAZOSULFAPYRIDINE [Concomitant]
  12. HEPARIN [Concomitant]
  13. BETAMETHASONE VALERATE [Concomitant]
  14. LEVOMENTHOL [Concomitant]
  15. CANDESARTAN CILEXETIL [Concomitant]
  16. INDOMETHACIN SODIUM [Concomitant]
  17. ALENDRONATE SODIUM [Concomitant]
  18. DEXAMETHASONE DIPROPIONATE [Concomitant]

REACTIONS (1)
  - DIFFUSE LARGE B-CELL LYMPHOMA STAGE III [None]
